FAERS Safety Report 22083555 (Version 2)
Quarter: 2023Q1

REPORT INFORMATION
  Report Type: Spontaneous
  Country: None (occurrence: GB)
  Receive Date: 20230310
  Receipt Date: 20230320
  Transmission Date: 20230418
  Serious: Yes (Other)
  Sender: FDA-Public Use
  Company Number: GB-Therakind Limited-2138910

PATIENT
  Sex: Female

DRUGS (8)
  1. METHOTREXATE [Suspect]
     Active Substance: METHOTREXATE
     Indication: Psoriatic arthropathy
  2. ADALIMUMAB [Suspect]
     Active Substance: ADALIMUMAB
  3. ETANERCEPT [Suspect]
     Active Substance: ETANERCEPT
  4. LEFLUNOMIDE [Suspect]
     Active Substance: LEFLUNOMIDE
  5. PREDNISOLONE [Suspect]
     Active Substance: PREDNISOLONE
  6. SECUKINUMAB [Suspect]
     Active Substance: SECUKINUMAB
  7. SULFASALAZINE [Suspect]
     Active Substance: SULFASALAZINE
  8. TOFACITINIB [Suspect]
     Active Substance: TOFACITINIB

REACTIONS (1)
  - Multiple-drug resistance [Unknown]
